FAERS Safety Report 9240186 (Version 1)
Quarter: 2013Q2

REPORT INFORMATION
  Report Type: Spontaneous
  Country: US (occurrence: None)
  Receive Date: 20130418
  Receipt Date: 20130418
  Transmission Date: 20140414
  Serious: Yes (Hospitalization, Other)
  Sender: FDA-Public Use
  Company Number: None

PATIENT
  Age: 35 Year
  Sex: Male
  Weight: 113.4 kg

DRUGS (1)
  1. AMBIEN [Suspect]
     Indication: SLEEP DISORDER
     Dosage: BEFORE SLEEP
     Route: 048
     Dates: start: 20120314, end: 20120901

REACTIONS (3)
  - Somnambulism [None]
  - Feeling abnormal [None]
  - Road traffic accident [None]
